FAERS Safety Report 15913272 (Version 3)
Quarter: 2019Q1

REPORT INFORMATION
  Report Type: Report from Study
  Country: US (occurrence: US)
  Receive Date: 20190204
  Receipt Date: 20190320
  Transmission Date: 20190417
  Serious: Yes (Other)
  Sender: FDA-Public Use
  Company Number: US-PFIZER INC-2019013996

PATIENT
  Age: 38 Year
  Sex: Female

DRUGS (3)
  1. AROMASIN [Concomitant]
     Active Substance: EXEMESTANE
     Dosage: UNK UNK, DAILY
  2. IBRANCE [Suspect]
     Active Substance: PALBOCICLIB
     Dosage: 125 MG, DAILY (FOR 21 DAYS AND OFF 7 DAYS)
     Route: 048
     Dates: start: 20181221
  3. IBRANCE [Suspect]
     Active Substance: PALBOCICLIB
     Indication: BREAST CANCER FEMALE
     Dosage: 125 MG, DAILY (FOR 21 DAYS AND OFF 7 DAYS)
     Route: 048
     Dates: start: 20181221, end: 20190207

REACTIONS (10)
  - Bone marrow failure [Unknown]
  - Headache [Unknown]
  - Skin erosion [Unknown]
  - Hot flush [Unknown]
  - Diarrhoea [Unknown]
  - Pain [Unknown]
  - Fatigue [Not Recovered/Not Resolved]
  - Product dose omission [Unknown]
  - White blood cell count decreased [Unknown]
  - Skin exfoliation [Unknown]
